FAERS Safety Report 14577377 (Version 1)
Quarter: 2018Q1

REPORT INFORMATION
  Report Type: Spontaneous
  Country: US (occurrence: US)
  Receive Date: 20180227
  Receipt Date: 20180227
  Transmission Date: 20180509
  Serious: Yes (Hospitalization, Other)
  Sender: FDA-Public Use
  Company Number: US-COVIS PHARMA B.V.-2018COV00152

PATIENT
  Age: 49 Year
  Sex: Female
  Weight: 65.76 kg

DRUGS (19)
  1. IRON [Concomitant]
     Active Substance: IRON
     Dosage: UNK, 1X/DAY
  2. AMINO ACIDS [Concomitant]
     Active Substance: AMINO ACIDS
  3. VITAMINS WITH MINERALS [Concomitant]
     Active Substance: MINERALS\VITAMINS
     Dosage: UNK
     Route: 048
     Dates: start: 2012
  4. OMEPRAZOLE MAGNESIUM. [Suspect]
     Active Substance: OMEPRAZOLE MAGNESIUM
     Indication: GASTRITIS
     Dosage: UNK
  5. NEXIUM [Suspect]
     Active Substance: ESOMEPRAZOLE MAGNESIUM
     Dosage: 40 MG, 1X/DAY
     Route: 048
     Dates: start: 20170104
  6. UNSPECIFIED [Concomitant]
     Active Substance: UNSPECIFIED INGREDIENT
  7. NEXIUM [Suspect]
     Active Substance: ESOMEPRAZOLE MAGNESIUM
     Indication: GASTROOESOPHAGEAL REFLUX DISEASE
     Dosage: 40 MG, 1X/DAY
     Route: 048
     Dates: start: 201407
  8. NEXIUM [Suspect]
     Active Substance: ESOMEPRAZOLE MAGNESIUM
     Dosage: 40 MG, 1X/DAY
     Route: 048
     Dates: start: 2016, end: 2016
  9. NEXIUM [Suspect]
     Active Substance: ESOMEPRAZOLE MAGNESIUM
     Dosage: 40 MG, 2X/DAY
     Route: 048
     Dates: start: 201701, end: 20170209
  10. FISH OIL [Concomitant]
     Active Substance: FISH OIL
     Indication: GASTRITIS
     Dosage: 1 G, 1X/DAY
     Route: 048
     Dates: start: 2012
  11. CARAFATE [Concomitant]
     Active Substance: SUCRALFATE
     Dosage: 1 G, 1X/DAY
     Route: 048
     Dates: start: 201711
  12. MAGNESIUM [Concomitant]
     Active Substance: MAGNESIUM
  13. VITAMIN D [Concomitant]
     Active Substance: CHOLECALCIFEROL
     Dosage: 1000 IU, 1X/DAY
     Route: 048
     Dates: start: 2012
  14. VITAMIN B12 [Concomitant]
     Active Substance: CYANOCOBALAMIN
     Route: 048
  15. VITAMIN C [Concomitant]
     Active Substance: ASCORBIC ACID
  16. PROBIOTICA [Concomitant]
     Active Substance: PROBIOTICS NOS
     Dosage: 25 DOSAGE UNITS, 1X/DAY
     Route: 048
     Dates: start: 2012
  17. DIGESTIVES ENZYMES [Concomitant]
  18. ALOE VERA [Concomitant]
     Active Substance: ALOE VERA LEAF
     Dosage: 1 TSP, 1X/DAY
     Route: 048
     Dates: start: 2012
  19. BUSPIRONE HYDROCHLORIDE. [Concomitant]
     Active Substance: BUSPIRONE HYDROCHLORIDE
     Dosage: 100 MG, 1X/DAY
     Route: 048
     Dates: start: 201712

REACTIONS (19)
  - Hyperhidrosis [Recovered/Resolved]
  - Gastric disorder [Recovered/Resolved]
  - Haematemesis [Unknown]
  - Bacterial abdominal infection [Unknown]
  - Gastric pH decreased [Unknown]
  - Hiatus hernia [Not Recovered/Not Resolved]
  - Abscess [Not Recovered/Not Resolved]
  - Candida infection [Not Recovered/Not Resolved]
  - Product use in unapproved indication [Not Recovered/Not Resolved]
  - Weight increased [Not Recovered/Not Resolved]
  - Intentional product misuse [Not Recovered/Not Resolved]
  - Acne [Not Recovered/Not Resolved]
  - Gastric perforation [Recovered/Resolved]
  - Inflammatory pain [Recovering/Resolving]
  - Abdominal pain upper [Unknown]
  - Drug ineffective [Not Recovered/Not Resolved]
  - Depression [Unknown]
  - Abdominal distension [Unknown]
  - Peritoneal permeability increased [Unknown]

NARRATIVE: CASE EVENT DATE: 2017
